FAERS Safety Report 11142784 (Version 1)
Quarter: 2015Q2

REPORT INFORMATION
  Report Type: Spontaneous
  Country: US (occurrence: US)
  Receive Date: 20150527
  Receipt Date: 20150527
  Transmission Date: 20150821
  Serious: Yes (Hospitalization)
  Sender: FDA-Public Use
  Company Number: US-JNJFOC-20150516920

PATIENT
  Age: 35 Year
  Sex: Female

DRUGS (6)
  1. IBUPROFEN. [Suspect]
     Active Substance: IBUPROFEN
     Indication: PRODUCT USED FOR UNKNOWN INDICATION
     Dosage: FOR MANY YEARS
     Route: 048
  2. METHOTREXATE [Concomitant]
     Active Substance: METHOTREXATE
     Dosage: TAKES ON THURSDAY
     Route: 058
  3. SIRUKUMAB [Concomitant]
     Active Substance: SIRUKUMAB
     Indication: RHEUMATOID ARTHRITIS
     Dosage: 50/100MG Q2WKS/Q4WKS, PATIENT TO RESUME STUDY DRUG ON 21-MAY-15, EVERY OTHER WEEK
     Route: 058
     Dates: start: 20140703, end: 20150422
  4. NORCO [Concomitant]
     Active Substance: ACETAMINOPHEN\HYDROCODONE BITARTRATE
     Dosage: 325-10MG
     Route: 048
  5. FOLIC ACID. [Concomitant]
     Active Substance: FOLIC ACID
     Route: 048
     Dates: start: 20110708
  6. PREDNISONE. [Concomitant]
     Active Substance: PREDNISONE
     Dosage: 10AM, 1 TABLET
     Route: 048

REACTIONS (2)
  - Gastrointestinal haemorrhage [Recovered/Resolved]
  - Angiodysplasia [Recovered/Resolved]

NARRATIVE: CASE EVENT DATE: 20150504
